FAERS Safety Report 9571044 (Version 1)
Quarter: 2013Q1

REPORT INFORMATION
  Report Type: Spontaneous
  Country: US (occurrence: None)
  Receive Date: 20120803
  Receipt Date: 20120803
  Transmission Date: 20140127
  Serious: Yes (Other)
  Sender: FDA-Public Use
  Company Number: 127925

PATIENT
  Sex: Male

DRUGS (1)
  1. PACLITAXEL [Suspect]
     Dosage: 168MG CONTINUOUS IV INFUSION
     Dates: start: 10111213

REACTIONS (1)
  - Infection [None]
